FAERS Safety Report 6939390-4 (Version None)
Quarter: 2010Q3

REPORT INFORMATION
  Report Type: 
  Country: None (occurrence: None)
  Receive Date: 20100819
  Receipt Date: 20100816
  Transmission Date: 20110219
  Serious: Yes (Death, Life-Threatening)
  Sender: FDA-Public Use
  Company Number: 2010SP044326

PATIENT
  Age: 23 Year
  Sex: Male

DRUGS (5)
  1. SAPHRIS [Suspect]
     Indication: ASPERGER'S DISORDER
     Dosage: 5 MG; BID; PO, 10 MG; BID; PO
     Route: 048
     Dates: start: 20100524
  2. SAPHRIS [Suspect]
     Indication: ASPERGER'S DISORDER
     Dosage: 5 MG; BID; PO, 10 MG; BID; PO
     Route: 048
     Dates: start: 20100813
  3. GEODON [Concomitant]
  4. KLONOPIN [Concomitant]
  5. CELEXA [Concomitant]

REACTIONS (2)
  - FALL [None]
  - HEAD INJURY [None]
